FAERS Safety Report 6076282-X (Version None)
Quarter: 2009Q1

REPORT INFORMATION
  Report Type: 
  Country: None (occurrence: None)
  Receive Date: 20090209
  Receipt Date: 20090205
  Transmission Date: 20090719
  Serious: Yes (Other)
  Sender: FDA-Public Use
  Company Number: 2009SP002087

PATIENT
  Age: 65 Year
  Sex: Female

DRUGS (11)
  1. BETAMETHASONE SODIUM PHOSPHATE [Suspect]
     Indication: OFF LABEL USE
     Dosage: 4 MG; QD; INH
     Route: 055
     Dates: start: 20081210, end: 20081218
  2. BETAMETHASONE SODIUM PHOSPHATE [Suspect]
     Indication: PHARYNGITIS
     Dosage: 4 MG; QD; INH
     Route: 055
     Dates: start: 20081210, end: 20081218
  3. NETROMICINE (NETILMICIN SULFATE) (NETILMICIN SULFATE) [Suspect]
     Indication: PHARYNGITIS
     Dosage: 100 MG; QD; INH
     Route: 055
     Dates: start: 20081210, end: 20081218
  4. CEFUROXIME [Suspect]
     Indication: PHARYNGITIS
     Dosage: 250 MG; BID; PO
     Route: 048
     Dates: start: 20081205, end: 20081208
  5. SPIFEN (IBUPROFEN) [Suspect]
     Indication: PHARYNGITIS
     Dosage: 400 MG; TID; PO
     Route: 048
     Dates: start: 20081205, end: 20081208
  6. PREDNISOLONE [Suspect]
     Indication: COUGH
     Dosage: 40 MG; TID; PO
     Route: 048
     Dates: start: 20081208, end: 20081210
  7. PREDNISOLONE [Suspect]
     Indication: PHARYNGITIS
     Dosage: 40 MG; TID; PO
     Route: 048
     Dates: start: 20081208, end: 20081210
  8. NEOCODION (NEO-CODION /01425101/) [Suspect]
     Indication: PHARYNGITIS
     Dosage: 2 DF; QD; PO
     Route: 048
     Dates: start: 20081210, end: 20081217
  9. MUCOMYST [Suspect]
     Indication: COUGH
     Dosage: 1 DF; QD; INH
     Route: 055
     Dates: start: 20081210, end: 20081218
  10. PAXELADINE (OXELADIN CITRATE) [Suspect]
     Indication: COUGH
     Dosage: 40 MG; TID; PO
     Route: 048
     Dates: start: 20081208, end: 20081210
  11. IMOVANE (ZOPICLONE) [Suspect]
     Indication: DRUG USE FOR UNKNOWN INDICATION
     Dosage: 1 DF; QD; PO
     Route: 048
     Dates: start: 20081210, end: 20081218

REACTIONS (3)
  - ACUTE GENERALISED EXANTHEMATOUS PUSTULOSIS [None]
  - HYPOALBUMINAEMIA [None]
  - HYPOKALAEMIA [None]
